FAERS Safety Report 11419053 (Version 1)
Quarter: 2015Q3

REPORT INFORMATION
  Report Type: Spontaneous
  Country: US (occurrence: None)
  Receive Date: 20150824
  Receipt Date: 20150824
  Transmission Date: 20151125
  Serious: Yes (Hospitalization)
  Sender: FDA-Public Use
  Company Number: US-2015ARB000002

PATIENT
  Age: 2 Year
  Sex: Male
  Weight: 12.5 kg

DRUGS (1)
  1. SOTYLIZE [Suspect]
     Active Substance: SOTALOL HYDROCHLORIDE
     Indication: SUPRAVENTRICULAR TACHYCARDIA
     Route: 048
     Dates: start: 2015, end: 20150806

REACTIONS (3)
  - Product quality issue [None]
  - Lethargy [None]
  - Bradycardia [None]

NARRATIVE: CASE EVENT DATE: 2015
